FAERS Safety Report 7669099-3 (Version None)
Quarter: 2011Q3

REPORT INFORMATION
  Report Type: 
  Country: None (occurrence: None)
  Receive Date: 20110808
  Receipt Date: 20110728
  Transmission Date: 20111222
  Serious: Yes (Other)
  Sender: FDA-Public Use
  Company Number: US-JNJFOC-20110800299

PATIENT
  Sex: Female
  Weight: 80.29 kg

DRUGS (13)
  1. HUMIRA [Suspect]
     Indication: PSORIATIC ARTHROPATHY
     Dosage: 40MG/0.8ML
     Route: 065
     Dates: start: 20080101, end: 20080101
  2. VICODIN [Concomitant]
     Indication: PAIN
     Route: 065
  3. MORPHINE [Concomitant]
     Indication: PAIN
     Route: 065
  4. TOPAMAX [Suspect]
     Indication: BIPOLAR II DISORDER
     Route: 048
  5. CLONAZEPAM [Concomitant]
     Indication: ANXIETY
     Route: 065
  6. ASPIRIN [Concomitant]
     Indication: CARDIAC DISORDER
     Route: 065
  7. MULTIPLE VITAMINS [Concomitant]
     Indication: VITAMIN SUPPLEMENTATION
     Route: 065
  8. CALCIUM WITH VITAMIN D [Concomitant]
     Indication: NUTRITIONAL SUPPORT
     Route: 065
  9. GEODONE [Concomitant]
     Indication: BIPOLAR II DISORDER
     Route: 065
  10. TOPAMAX [Suspect]
     Indication: MIGRAINE
     Route: 048
  11. RAPTIVA [Suspect]
     Indication: PUSTULAR PSORIASIS
     Route: 065
     Dates: end: 20080101
  12. FLURAZEPAM HYDROCHLORIDE [Concomitant]
     Indication: SLEEP DISORDER THERAPY
     Route: 065
  13. CARISOPRODOL [Concomitant]
     Indication: PAIN
     Route: 065

REACTIONS (6)
  - THROMBOSIS [None]
  - MEMORY IMPAIRMENT [None]
  - POLYNEUROPATHY [None]
  - SKIN DISCOLOURATION [None]
  - OEDEMA PERIPHERAL [None]
  - BENIGN NEOPLASM OF BLADDER [None]
